FAERS Safety Report 4281061-X (Version None)
Quarter: 2004Q1

REPORT INFORMATION
  Report Type: 
  Country: None (occurrence: None)
  Receive Date: 20040123
  Receipt Date: 20030603
  Transmission Date: 20041129
  Serious: Yes (Hospitalization)
  Sender: FDA-Public Use
  Company Number: HQWYE461704JUN03

PATIENT
  Age: 75 Year
  Sex: Male
  Weight: 86.26 kg

DRUGS (6)
  1. CORDARONE [Suspect]
     Indication: ATRIAL FIBRILLATION
     Dosage: 200 MG 2X PER 1 DAY, ORAL
     Route: 048
     Dates: start: 19950101, end: 20030524
  2. ZESTRIL [Concomitant]
  3. COREG [Concomitant]
  4. ASPIRIN [Concomitant]
  5. SYNTHROID [Concomitant]
  6. GLUCOTROL [Concomitant]

REACTIONS (1)
  - PULMONARY FIBROSIS [None]
